FAERS Safety Report 25724071 (Version 1)
Quarter: 2025Q3

REPORT INFORMATION
  Report Type: Report from Study
  Country: TR (occurrence: TR)
  Receive Date: 20250826
  Receipt Date: 20250826
  Transmission Date: 20251020
  Serious: Yes (Other)
  Sender: JOHNSON AND JOHNSON
  Company Number: TR-JNJFOC-20250820438

PATIENT

DRUGS (5)
  1. GOLIMUMAB [Suspect]
     Active Substance: GOLIMUMAB
     Indication: Product used for unknown indication
     Route: 058
  2. INFLIXIMAB [Suspect]
     Active Substance: INFLIXIMAB
     Indication: Product used for unknown indication
     Route: 041
  3. ADALIMUMAB [Suspect]
     Active Substance: ADALIMUMAB
  4. CERTOLIZUMAB [Suspect]
     Active Substance: CERTOLIZUMAB
  5. ETANERCEPT [Suspect]
     Active Substance: ETANERCEPT

REACTIONS (3)
  - Pulmonary tuberculosis [Unknown]
  - Extrapulmonary tuberculosis [Unknown]
  - Latent tuberculosis [Unknown]
